FAERS Safety Report 6408569-2 (Version None)
Quarter: 2009Q4

REPORT INFORMATION
  Report Type: 
  Country: None (occurrence: None)
  Receive Date: 20091021
  Receipt Date: 20091019
  Transmission Date: 20100525
  Serious: Yes (Death)
  Sender: FDA-Public Use
  Company Number: ID-EISAI INC.-E2090-00851-SPO-ID

PATIENT
  Age: 19 Year
  Sex: Female

DRUGS (15)
  1. ZONEGRAN [Suspect]
     Route: 048
     Dates: start: 20090908, end: 20090918
  2. ZONEGRAN [Suspect]
     Indication: ENCEPHALITIS HERPES
     Route: 048
     Dates: start: 20090919, end: 20090925
  3. ZONEGRAN [Suspect]
     Route: 048
     Dates: start: 20090926, end: 20090928
  4. DEPAKOTE [Concomitant]
     Route: 048
     Dates: start: 20090727, end: 20090914
  5. DEPAKOTE [Concomitant]
     Indication: ENCEPHALITIS HERPES
     Route: 048
     Dates: start: 20090915, end: 20090928
  6. KEPPRA [Concomitant]
     Route: 048
     Dates: start: 20090718, end: 20090914
  7. KEPPRA [Concomitant]
     Indication: ENCEPHALITIS HERPES
     Route: 048
     Dates: start: 20090901, end: 20090901
  8. KEPPRA [Concomitant]
     Route: 048
     Dates: start: 20090915, end: 20090928
  9. ROCULAX [Concomitant]
     Route: 041
     Dates: start: 20090925, end: 20090928
  10. PENTOTHAL [Concomitant]
     Route: 041
     Dates: start: 20090907, end: 20090916
  11. ROCURONIUM BROMIDE [Concomitant]
     Route: 041
     Dates: start: 20090911, end: 20090915
  12. PAVULON [Concomitant]
     Route: 041
     Dates: start: 20090915, end: 20090916
  13. PAVULON [Concomitant]
     Route: 041
     Dates: start: 20090917, end: 20090919
  14. PAVULON [Concomitant]
     Route: 041
     Dates: start: 20090920, end: 20090925
  15. CYMEVENE [Concomitant]
     Dates: start: 20090101

REACTIONS (1)
  - BRADYCARDIA [None]
